FAERS Safety Report 11883477 (Version 4)
Quarter: 2016Q1

REPORT INFORMATION
  Report Type: Report from Study
  Country: CA (occurrence: CA)
  Receive Date: 20151231
  Receipt Date: 20160113
  Transmission Date: 20160526
  Serious: Yes (Other)
  Sender: FDA-Public Use
  Company Number: PHHY2015CA169014

PATIENT
  Sex: Female

DRUGS (13)
  1. VENTOLIN [Concomitant]
     Active Substance: ALBUTEROL SULFATE
     Indication: ASTHMA
     Dosage: UNK
     Route: 065
  2. PREDNISONE. [Suspect]
     Active Substance: PREDNISONE
     Indication: PRODUCT USED FOR UNKNOWN INDICATION
     Dosage: TWO COURSES
     Route: 048
  3. CETRIZINE [Concomitant]
     Active Substance: CETIRIZINE HYDROCHLORIDE
     Indication: PRODUCT USED FOR UNKNOWN INDICATION
     Route: 065
  4. CICLOSPORIN [Suspect]
     Active Substance: CYCLOSPORINE
     Dosage: 50 MG Q AM, 25 MG Q PM
     Route: 048
     Dates: start: 201510, end: 201511
  5. OVALE [Concomitant]
     Indication: PRODUCT USED FOR UNKNOWN INDICATION
     Route: 065
  6. CICLOSPORIN [Suspect]
     Active Substance: CYCLOSPORINE
     Indication: ECZEMA
     Dosage: 50 MG Q AM, 25 MG Q PM
     Route: 048
  7. CICLOSPORIN [Suspect]
     Active Substance: CYCLOSPORINE
     Dosage: 75 MG Q AM, 75 MG Q PM
     Route: 048
     Dates: start: 201509, end: 201510
  8. CICLOSPORIN [Suspect]
     Active Substance: CYCLOSPORINE
     Dosage: 75 MG, BID
     Route: 048
     Dates: start: 20150831
  9. CICLOSPORIN [Suspect]
     Active Substance: CYCLOSPORINE
     Dosage: 75 MG, QD
     Route: 048
  10. METHOTREXATE [Suspect]
     Active Substance: METHOTREXATE
     Indication: PRODUCT USED FOR UNKNOWN INDICATION
     Dosage: TWO COURSES
     Route: 048
  11. CORTISONE [Concomitant]
     Active Substance: CORTISONE\HYDROCORTISONE
     Indication: PRODUCT USED FOR UNKNOWN INDICATION
     Route: 061
  12. SINGULAIR [Concomitant]
     Active Substance: MONTELUKAST SODIUM
     Indication: PRODUCT USED FOR UNKNOWN INDICATION
     Route: 065
  13. PROTOPIC [Concomitant]
     Active Substance: TACROLIMUS
     Indication: PRODUCT USED FOR UNKNOWN INDICATION
     Route: 065

REACTIONS (17)
  - Suicidal ideation [Recovered/Resolved]
  - Pruritus [Unknown]
  - Off label use [Unknown]
  - Cystitis [Unknown]
  - Depressive symptom [Recovered/Resolved]
  - Dyspnoea [Unknown]
  - Immunosuppressant drug level increased [Recovered/Resolved]
  - Scar [Unknown]
  - Abdominal discomfort [Unknown]
  - Drug ineffective [Unknown]
  - Fungal infection [Unknown]
  - Rhinitis [Unknown]
  - Eczema [Unknown]
  - Epigastric discomfort [Unknown]
  - Urinary tract infection [Recovered/Resolved]
  - Anxiety [Unknown]
  - Secretion discharge [Unknown]

NARRATIVE: CASE EVENT DATE: 2015
